FAERS Safety Report 20962675 (Version 1)
Quarter: 2022Q2

REPORT INFORMATION
  Report Type: Spontaneous
  Country: US (occurrence: None)
  Receive Date: 20220615
  Receipt Date: 20220615
  Transmission Date: 20220720
  Serious: Yes (Hospitalization)
  Sender: FDA-Public Use
  Company Number: None

PATIENT
  Age: 74 Year
  Sex: 0

DRUGS (1)
  1. FLUTEMETAMOL [Suspect]
     Active Substance: FLUTEMETAMOL
     Dates: start: 20220506

REACTIONS (6)
  - Dizziness [None]
  - Chest discomfort [None]
  - Muscle spasms [None]
  - Hyperhidrosis [None]
  - Blood pressure increased [None]
  - Heart rate decreased [None]

NARRATIVE: CASE EVENT DATE: 20220506
